FAERS Safety Report 5396894-6 (Version None)
Quarter: 2007Q3

REPORT INFORMATION
  Report Type: 
  Country: None (occurrence: None)
  Receive Date: 20070723
  Receipt Date: 20070717
  Transmission Date: 20080115
  Serious: Yes (Hospitalization)
  Sender: FDA-Public Use
  Company Number: 2007SP013467

PATIENT
  Age: 66 Year
  Sex: Female

DRUGS (4)
  1. ALBUTEROL [Suspect]
     Indication: DRUG USE FOR UNKNOWN INDICATION
     Dosage: PO
     Route: 048
  2. FORADIL [Concomitant]
  3. SPIRIVA [Concomitant]
  4. ADVAIR DISKUS 100/50 [Concomitant]

REACTIONS (4)
  - BURNING SENSATION [None]
  - DRUG EFFECT DECREASED [None]
  - LUNG DISORDER [None]
  - PO2 DECREASED [None]
